FAERS Safety Report 17529756 (Version 1)
Quarter: 2020Q1

REPORT INFORMATION
  Report Type: Spontaneous
  Country: FR (occurrence: FR)
  Receive Date: 20200311
  Receipt Date: 20200311
  Transmission Date: 20200409
  Serious: Yes (Other)
  Sender: FDA-Public Use
  Company Number: FR-MYLANLABS-2020M1025825

PATIENT
  Age: 58 Year
  Sex: Male
  Weight: 78 kg

DRUGS (9)
  1. FUROSEMIDE. [Suspect]
     Active Substance: FUROSEMIDE
     Indication: CARDIAC FAILURE
     Dosage: INCONUE
     Route: 048
     Dates: start: 201911, end: 20191130
  2. XENETIX 300 [Interacting]
     Active Substance: IOBITRIDOL
     Indication: COMPUTERISED TOMOGRAM
     Dosage: 130 MILLILITER, TOTAL
     Route: 042
     Dates: start: 20191201, end: 20191201
  3. KARDEGIC [Concomitant]
     Active Substance: ASPIRIN DL-LYSINE
     Dosage: 1 DOSAGE FORM, QD
     Route: 048
     Dates: start: 201911
  4. CLOPIDOGREL [Concomitant]
     Active Substance: CLOPIDOGREL BISULFATE
     Dosage: 75 MILLIGRAM, QD
     Route: 048
     Dates: start: 20191125
  5. HEPARINE SODIQUE [Concomitant]
     Active Substance: HEPARIN SODIUM
     Dosage: INCONNUE
     Route: 042
     Dates: start: 20191103
  6. VISIPAQUE [Interacting]
     Active Substance: IODIXANOL
     Indication: ANGIOPLASTY
     Dosage: 130 MILLILITER, TOTAL
     Route: 042
     Dates: start: 20191126, end: 20191126
  7. EPLERENONE. [Interacting]
     Active Substance: EPLERENONE
     Indication: CARDIAC FAILURE
     Dosage: 25 MILLIGRAM, QD
     Route: 048
     Dates: start: 20191122, end: 20191130
  8. PERINDOPRIL [Interacting]
     Active Substance: PERINDOPRIL
     Indication: CARDIAC FAILURE
     Dosage: 2.5 MILLIGRAM, QD
     Route: 048
     Dates: start: 20191122, end: 20191130
  9. BISOPROLOL                         /00802602/ [Concomitant]
     Active Substance: BISOPROLOL
     Indication: CARDIAC FAILURE
     Dosage: 2.5 MILLIGRAM, QD
     Route: 048
     Dates: start: 20191122, end: 20191130

REACTIONS (2)
  - Drug interaction [Recovered/Resolved]
  - Acute kidney injury [Recovered/Resolved]

NARRATIVE: CASE EVENT DATE: 201911
